FAERS Safety Report 18386488 (Version 1)
Quarter: 2020Q4

REPORT INFORMATION
  Report Type: Spontaneous
  Country: US (occurrence: US)
  Receive Date: 20201014
  Receipt Date: 20201014
  Transmission Date: 20210114
  Serious: No
  Sender: FDA-Public Use
  Company Number: None

PATIENT
  Age: 7 Year
  Sex: Male
  Weight: 43.2 kg

DRUGS (6)
  1. CLARITIN [Concomitant]
     Active Substance: LORATADINE
  2. MONTELUKAST SODIUM CHEWABLE TABLETS USP, GENERIC FOR SINGULAIR 5 MG [Suspect]
     Active Substance: MONTELUKAST SODIUM
     Indication: ASTHMA
  3. PRO -AIR [Concomitant]
  4. ZYRTEC [Concomitant]
     Active Substance: CETIRIZINE HYDROCHLORIDE
  5. MONTELUKAST SODIUM CHEWABLE TABLETS USP, GENERIC FOR SINGULAIR 5 MG [Suspect]
     Active Substance: MONTELUKAST SODIUM
     Indication: MULTIPLE ALLERGIES
  6. ALBUTEROL RESCUE INHALER [Concomitant]

REACTIONS (11)
  - Affect lability [None]
  - Mood swings [None]
  - Depression [None]
  - Suicidal ideation [None]
  - Asphyxia [None]
  - Anger [None]
  - Agitation [None]
  - Tearfulness [None]
  - Intentional self-injury [None]
  - Morbid thoughts [None]
  - Aggression [None]

NARRATIVE: CASE EVENT DATE: 20191201
